FAERS Safety Report 19095817 (Version 4)
Quarter: 2021Q3

REPORT INFORMATION
  Report Type: Report from Study
  Country: US (occurrence: US)
  Receive Date: 20210406
  Receipt Date: 20210711
  Transmission Date: 20211014
  Serious: No
  Sender: FDA-Public Use
  Company Number: US-JNJFOC-20210401817

PATIENT
  Age: 52 Year
  Sex: Female

DRUGS (2)
  1. STELARA [Suspect]
     Active Substance: USTEKINUMAB
  2. STELARA [Suspect]
     Active Substance: USTEKINUMAB
     Indication: PSORIASIS
     Dosage: 45.00 MG / 0.50 ML
     Route: 058

REACTIONS (3)
  - Syringe issue [Unknown]
  - Product dose omission issue [Unknown]
  - Needle issue [Unknown]

NARRATIVE: CASE EVENT DATE: 20210326
